FAERS Safety Report 16054953 (Version 2)
Quarter: 2019Q1

REPORT INFORMATION
  Report Type: Report from Study
  Country: US (occurrence: US)
  Receive Date: 20190310
  Receipt Date: 20190322
  Transmission Date: 20190418
  Serious: No
  Sender: FDA-Public Use
  Company Number: US-ELI_LILLY_AND_COMPANY-US201903000593

PATIENT
  Sex: Male

DRUGS (3)
  1. BASAGLAR [Suspect]
     Active Substance: INSULIN GLARGINE
     Indication: TYPE 2 DIABETES MELLITUS
     Dosage: 20 IU, DAILY
     Route: 065
  2. BASAGLAR [Suspect]
     Active Substance: INSULIN GLARGINE
     Dosage: 21 IU, DAILY
     Route: 058
  3. BASAGLAR [Suspect]
     Active Substance: INSULIN GLARGINE
     Dosage: 20 IU, DAILY
     Route: 065

REACTIONS (1)
  - Malaise [Not Recovered/Not Resolved]
